FAERS Safety Report 13489906 (Version 1)
Quarter: 2017Q2

REPORT INFORMATION
  Report Type: Spontaneous
  Country: US (occurrence: US)
  Receive Date: 20170427
  Receipt Date: 20170427
  Transmission Date: 20170830
  Serious: No
  Sender: FDA-Public Use
  Company Number: None

PATIENT
  Age: 14 Year
  Sex: Female

DRUGS (1)
  1. MONTELUKAST SOD CHEW TABS - 5MG [Suspect]
     Active Substance: MONTELUKAST SODIUM
     Route: 048

REACTIONS (3)
  - Product odour abnormal [None]
  - Product quality issue [None]
  - Product taste abnormal [None]

NARRATIVE: CASE EVENT DATE: 20170413
